FAERS Safety Report 6832250-9 (Version None)
Quarter: 2010Q3

REPORT INFORMATION
  Report Type: 
  Country: None (occurrence: None)
  Receive Date: 20100712
  Receipt Date: 20100708
  Transmission Date: 20110219
  Serious: Yes (Death)
  Sender: FDA-Public Use
  Company Number: BR-ASTRAZENECA-2010SE31744

PATIENT
  Age: 84 Year
  Sex: Female

DRUGS (1)
  1. SEROQUEL [Suspect]
     Indication: INSOMNIA
     Dosage: HALF TABLET ONCE DAILY
     Route: 048

REACTIONS (2)
  - CARDIOPULMONARY FAILURE [None]
  - URINARY TRACT INFECTION [None]
